FAERS Safety Report 7977498-5 (Version None)
Quarter: 2011Q4

REPORT INFORMATION
  Report Type: 
  Country: None (occurrence: None)
  Receive Date: 20111214
  Receipt Date: 20111118
  Transmission Date: 20120403
  Serious: Yes (Death, Hospitalization)
  Sender: FDA-Public Use
  Company Number: US-AMGEN-USASP2011061056

PATIENT
  Age: 65 Year
  Sex: Female

DRUGS (3)
  1. ENBREL [Suspect]
     Indication: RHEUMATOID ARTHRITIS
     Dosage: UNK
     Dates: start: 20100327, end: 20110201
  2. CELLCEPT                           /01275104/ [Concomitant]
  3. ENBREL [Suspect]
     Indication: VASCULITIS

REACTIONS (4)
  - STAPHYLOCOCCAL INFECTION [None]
  - URINARY TRACT INFECTION [None]
  - SEPSIS [None]
  - AUTOIMMUNE HEPATITIS [None]
